FAERS Safety Report 16163025 (Version 2)
Quarter: 2019Q3

REPORT INFORMATION
  Report Type: Spontaneous
  Country: CM (occurrence: CM)
  Receive Date: 20190405
  Receipt Date: 20190723
  Transmission Date: 20191004
  Serious: Yes (Death)
  Sender: FDA-Public Use
  Company Number: CM-IMPAX LABORATORIES, LLC-2019-IPXL-00780

PATIENT
  Age: 47 Year
  Sex: Female

DRUGS (11)
  1. ADRENACLICK [Suspect]
     Active Substance: EPINEPHRINE
     Indication: ANAPHYLACTIC SHOCK
     Dosage: 1:1000 DILUTION AT 0.2MG EVERY 5MIN
     Route: 042
  2. METHYLPREDNISOLONE. [Concomitant]
     Active Substance: METHYLPREDNISOLONE
     Indication: PRODUCT USED FOR UNKNOWN INDICATION
     Dosage: 80 MILLIGRAM/KILOGRAM
     Route: 042
  3. CEFTRIAXONE. [Concomitant]
     Active Substance: CEFTRIAXONE
     Indication: PRODUCT USED FOR UNKNOWN INDICATION
     Dosage: 2 GRAM/24H
     Route: 042
  4. NORADRENALINE ACID TARTRATE ANHYDROUS [Concomitant]
     Active Substance: NOREPINEPHRINE BITARTRATE
     Indication: SEPTIC SHOCK
  5. PARACETAMOL [Concomitant]
     Active Substance: ACETAMINOPHEN
     Indication: PRODUCT USED FOR UNKNOWN INDICATION
     Dosage: 1 GRAM, EVERY 6HR
     Route: 042
  6. PROMETHAZINE [Concomitant]
     Active Substance: PROMETHAZINE HYDROCHLORIDE
     Indication: PRODUCT USED FOR UNKNOWN INDICATION
     Dosage: 25 MILLIGRAM, EVERY 8HR
     Route: 042
  7. NORADRENALINE ACID TARTRATE ANHYDROUS [Concomitant]
     Active Substance: NOREPINEPHRINE BITARTRATE
     Indication: ANAPHYLACTIC REACTION
     Dosage: 0.3/KG/MIN
     Route: 065
  8. TRAMADOL. [Concomitant]
     Active Substance: TRAMADOL
     Indication: PRODUCT USED FOR UNKNOWN INDICATION
     Dosage: 100 MILLIGRAM, EVERY 8HR
     Route: 042
  9. ADRENACLICK [Suspect]
     Active Substance: EPINEPHRINE
     Dosage: UNK
  10. NORMAL SALINE [Concomitant]
     Active Substance: SODIUM CHLORIDE
     Indication: PRODUCT USED FOR UNKNOWN INDICATION
     Dosage: 20 ML/KG (TOTAL 31 DOSES)
     Route: 065
  11. METRONIDAZOLE. [Concomitant]
     Active Substance: METRONIDAZOLE
     Indication: PRODUCT USED FOR UNKNOWN INDICATION
     Dosage: 500 MILLIGRAM, EVERY 8HR
     Route: 042

REACTIONS (1)
  - Drug ineffective [Fatal]
